FAERS Safety Report 5452746-4 (Version None)
Quarter: 2007Q3

REPORT INFORMATION
  Report Type: 
  Country: None (occurrence: None)
  Receive Date: 20070914
  Receipt Date: 20070905
  Transmission Date: 20080115
  Serious: Yes (Hospitalization)
  Sender: FDA-Public Use
  Company Number: JP-SANOFI-SYNTHELABO-F01200701095

PATIENT
  Sex: Male

DRUGS (4)
  1. ISOVORIN [Suspect]
     Dosage: UNK
     Route: 042
  2. FLUOROURACIL INJ [Suspect]
     Dosage: K UNK
     Route: 042
  3. BEVACIZUMAB [Suspect]
     Route: 042
  4. OXALIPLATIN [Suspect]
     Indication: RECTAL CANCER
     Dosage: UNK
     Route: 042

REACTIONS (6)
  - ALANINE AMINOTRANSFERASE INCREASED [None]
  - ASPARTATE AMINOTRANSFERASE INCREASED [None]
  - BLOOD BILIRUBIN INCREASED [None]
  - FALL [None]
  - JAW FRACTURE [None]
  - PLATELET COUNT DECREASED [None]
